FAERS Safety Report 9563512 (Version 1)
Quarter: 2013Q1

REPORT INFORMATION
  Report Type: Spontaneous
  Country: US (occurrence: None)
  Receive Date: 20121227
  Receipt Date: 20121227
  Transmission Date: 20140127
  Serious: Yes (Other)
  Sender: FDA-Public Use
  Company Number: PHEH2012US004058

PATIENT
  Age: 82 Year
  Sex: Female

DRUGS (1)
  1. EXJADE (*CGP 72670*) [Suspect]
     Indication: IRON OVERLOAD
     Route: 048
     Dates: start: 201201

REACTIONS (2)
  - Retinal haemorrhage [None]
  - Weight increased [None]
